FAERS Safety Report 4368151-8 (Version None)
Quarter: 2004Q2

REPORT INFORMATION
  Report Type: 
  Country: None (occurrence: None)
  Receive Date: 20040602
  Receipt Date: 20040505
  Transmission Date: 20050107
  Serious: Yes (Hospitalization)
  Sender: FDA-Public Use
  Company Number: PHBS2004PL06126

PATIENT
  Age: 70 Year
  Sex: Female
  Weight: 75 kg

DRUGS (5)
  1. LAMISIL [Suspect]
     Indication: NAIL TINEA
     Dosage: 250 MG/D
     Route: 048
     Dates: start: 20020401, end: 20020604
  2. CARDONIT - SLOW RELEASE [Concomitant]
  3. ENARENAL [Concomitant]
  4. VINPOCETINE [Concomitant]
  5. LOVASTEROL [Concomitant]

REACTIONS (10)
  - ANTINUCLEAR ANTIBODY POSITIVE [None]
  - BLISTER [None]
  - CUTANEOUS LUPUS ERYTHEMATOSUS [None]
  - ERYTHEMA [None]
  - ERYTHEMA MULTIFORME [None]
  - HYPERGAMMAGLOBULINAEMIA [None]
  - PRURITUS [None]
  - PURPURA [None]
  - RED BLOOD CELL SEDIMENTATION RATE INCREASED [None]
  - SKIN LESION [None]
